FAERS Safety Report 20668346 (Version 3)
Quarter: 2022Q3

REPORT INFORMATION
  Report Type: Other
  Country: JP (occurrence: JP)
  Receive Date: 20220404
  Receipt Date: 20220901
  Transmission Date: 20221027
  Serious: Yes (Death, Hospitalization, Other)
  Sender: FDA-Public Use
  Company Number: JP-CHUGAI-2021027396

PATIENT
  Age: 57 Year
  Sex: Male
  Weight: 65.1 kg

DRUGS (7)
  1. ATEZOLIZUMAB [Suspect]
     Active Substance: ATEZOLIZUMAB
     Indication: Lung adenocarcinoma
     Dosage: 1200 MILLIGRAM, SINGLE AS REQUIRED
     Route: 041
     Dates: start: 20211022, end: 20211022
  2. BEVACIZUMAB [Suspect]
     Active Substance: BEVACIZUMAB
     Indication: Lung adenocarcinoma
     Dosage: 950 MILLIGRAM
     Route: 041
     Dates: start: 20211022, end: 20211119
  3. BEVACIZUMAB [Suspect]
     Active Substance: BEVACIZUMAB
     Dosage: 910 MILLIGRAM, SINGLE
     Route: 041
     Dates: start: 20211213, end: 20211213
  4. CARBOPLATIN [Suspect]
     Active Substance: CARBOPLATIN
     Indication: Lung adenocarcinoma
     Dosage: 700 MILLIGRAM, ONCE/4WEEKS
     Route: 041
     Dates: start: 20211022, end: 20211119
  5. CARBOPLATIN [Suspect]
     Active Substance: CARBOPLATIN
     Dosage: 670 MILLIGRAM, SINGLE
     Route: 041
     Dates: start: 20211213, end: 20211213
  6. PACLITAXEL [Suspect]
     Active Substance: PACLITAXEL
     Indication: Lung adenocarcinoma
     Dosage: 300 MILLIGRAM
     Route: 041
     Dates: start: 20211022
  7. PACLITAXEL [Suspect]
     Active Substance: PACLITAXEL
     Dosage: 340 MILLIGRAM, SINGLE
     Route: 041
     Dates: start: 20211119, end: 20211213

REACTIONS (5)
  - Death [Fatal]
  - Interstitial lung disease [Recovering/Resolving]
  - Neutrophil count decreased [Unknown]
  - Stevens-Johnson syndrome [Recovered/Resolved]
  - Oral candidiasis [Recovered/Resolved]

NARRATIVE: CASE EVENT DATE: 20211102
